FAERS Safety Report 7347086-2 (Version None)
Quarter: 2011Q1

REPORT INFORMATION
  Report Type: 
  Country: None (occurrence: None)
  Receive Date: 20110303
  Receipt Date: 20110216
  Transmission Date: 20110831
  Serious: Yes (Other)
  Sender: FDA-Public Use
  Company Number: 018326

PATIENT
  Sex: Female

DRUGS (4)
  1. PRENATAL VITAMINS [Concomitant]
  2. ZOFRAN [Concomitant]
  3. KEPPRA [Suspect]
     Dosage: (500 MG BID)
  4. FOLIC ACID [Concomitant]

REACTIONS (4)
  - PREGNANCY [None]
  - PREMATURE LABOUR [None]
  - DRUG EXPOSURE DURING PREGNANCY [None]
  - VOMITING IN PREGNANCY [None]
